FAERS Safety Report 14354495 (Version 4)
Quarter: 2018Q1

REPORT INFORMATION
  Report Type: Spontaneous
  Country: DE (occurrence: DE)
  Receive Date: 20180105
  Receipt Date: 20180304
  Transmission Date: 20180509
  Serious: Yes (Death, Life-Threatening)
  Sender: FDA-Public Use
  Company Number: PHHY2018DE000842

PATIENT
  Age: 68 Year
  Sex: Female

DRUGS (15)
  1. PANTOZOL [Concomitant]
     Active Substance: PANTOPRAZOLE SODIUM
     Indication: ULCER
     Dosage: 40 MG, BID
     Route: 042
     Dates: start: 20171227
  2. BELOC-ZOK COMP [Concomitant]
     Active Substance: HYDROCHLOROTHIAZIDE\METOPROLOL SUCCINATE
     Indication: HYPERTENSION
     Dosage: 95 MG, BID
     Route: 048
  3. ENALAPRIL [Concomitant]
     Active Substance: ENALAPRIL
     Indication: HYPERTENSION
     Dosage: 5 MG, BID
     Route: 048
  4. ARIXTRA [Concomitant]
     Active Substance: FONDAPARINUX SODIUM
     Indication: PULMONARY EMBOLISM
     Dosage: 2.5 MG, QD
     Route: 058
     Dates: start: 20171224
  5. TAFINLAR [Suspect]
     Active Substance: DABRAFENIB MESYLATE
     Indication: METASTATIC MALIGNANT MELANOMA
     Dosage: 150 MG, QD
     Route: 065
     Dates: start: 20171227, end: 20171227
  6. METRONIDAZOLE. [Concomitant]
     Active Substance: METRONIDAZOLE
     Indication: CHOLECYSTITIS
     Dosage: 500 MG, TID
     Route: 042
     Dates: start: 20171221
  7. PASPERTIN [METOCLOPRAMIDE HYDROCHLORIDE] [Concomitant]
     Active Substance: METOCLOPRAMIDE HYDROCHLORIDE
     Indication: VOMITING
     Dosage: 10 MG, TID
     Route: 042
     Dates: start: 20171222
  8. PALLADON [Concomitant]
     Active Substance: HYDROMORPHONE
     Indication: PAIN
     Dosage: 1.3 MG, UNK (UP TO 5 TIMES PER DAY)
     Route: 048
     Dates: start: 20171222
  9. DEXAMETHASONE. [Concomitant]
     Active Substance: DEXAMETHASONE
     Indication: PAIN
     Dosage: 4 MG, QD
     Route: 042
     Dates: start: 20171225
  10. MEKINIST [Suspect]
     Active Substance: TRAMETINIB DIMETHYL SULFOXIDE
     Indication: METASTATIC MALIGNANT MELANOMA
     Dosage: 2 MG, QD
     Route: 065
     Dates: start: 20171227, end: 20171227
  11. ZOFRAN [Suspect]
     Active Substance: ONDANSETRON HYDROCHLORIDE
     Indication: VOMITING
     Dosage: 8 MG, BID
     Route: 065
     Dates: start: 20171224
  12. CIPROBAY [Concomitant]
     Active Substance: CIPROFLOXACIN
     Indication: CHOLECYSTITIS
     Dosage: 400 MG, BID
     Route: 042
     Dates: start: 20171221
  13. NOVAMINSULFON [Concomitant]
     Active Substance: METAMIZOLE
     Indication: CHOLECYSTITIS
     Dosage: 1 G, TID
     Route: 042
     Dates: start: 201712
  14. MOVICOL [Concomitant]
     Active Substance: POLYETHYLENE GLYCOL 3350\POTASSIUM CHLORIDE\SODIUM BICARBONATE\SODIUM CHLORIDE
     Indication: CONSTIPATION
     Dosage: 1 OT, QD (1 SACHET)
     Route: 048
     Dates: start: 201712
  15. NORSPAN [Concomitant]
     Active Substance: BUPRENORPHINE
     Indication: PRODUCT USED FOR UNKNOWN INDICATION
     Dosage: 5 OT, UNK (MICRO GRAM PER HOUR)
     Route: 065
     Dates: start: 20171222

REACTIONS (7)
  - Deep vein thrombosis [Fatal]
  - Portal hypertension [Unknown]
  - Mallory-Weiss syndrome [Fatal]
  - Cardiac failure [Fatal]
  - Upper gastrointestinal haemorrhage [Fatal]
  - Pulmonary embolism [Fatal]
  - Oesophageal rupture [Fatal]

NARRATIVE: CASE EVENT DATE: 20171228
